FAERS Safety Report 9050607 (Version 1)
Quarter: 2013Q1

REPORT INFORMATION
  Report Type: Spontaneous
  Country: US (occurrence: US)
  Receive Date: 20130205
  Receipt Date: 20130205
  Transmission Date: 20140127
  Serious: No
  Sender: FDA-Public Use
  Company Number: US-009507513-1301USA012156

PATIENT
  Age: 76 None
  Sex: Male
  Weight: 79.37 kg

DRUGS (2)
  1. MIRALAX [Suspect]
     Indication: LAXATIVE SUPPORTIVE CARE
     Dosage: 17 G, BID
     Route: 048
     Dates: start: 20120908, end: 20121015
  2. MIRALAX [Suspect]
     Indication: MEDICAL OBSERVATION

REACTIONS (3)
  - Diarrhoea [Recovered/Resolved]
  - Overdose [Unknown]
  - Incorrect drug administration duration [Unknown]
